FAERS Safety Report 7061086-1 (Version None)
Quarter: 2010Q4

REPORT INFORMATION
  Report Type: 
  Country: None (occurrence: None)
  Receive Date: 20101026
  Receipt Date: 20101019
  Transmission Date: 20110411
  Serious: Yes (Other)
  Sender: FDA-Public Use
  Company Number: US-PFIZER INC-2010133074

PATIENT
  Sex: Male
  Weight: 91.61 kg

DRUGS (7)
  1. GLIPIZIDE [Suspect]
     Indication: TYPE 2 DIABETES MELLITUS
     Dosage: 5 MG, 1X/DAY
     Route: 048
  2. GLIPIZIDE [Suspect]
     Dosage: UNK
  3. METFORMIN [Concomitant]
     Indication: TYPE 2 DIABETES MELLITUS
     Dosage: UNK
  4. SITAGLIPTIN [Concomitant]
     Indication: TYPE 2 DIABETES MELLITUS
     Dosage: UNK
  5. LISINOPRIL [Concomitant]
     Indication: RENAL DISORDER
     Dosage: UNK
  6. SIMVASTATIN [Concomitant]
     Indication: BLOOD CHOLESTEROL INCREASED
     Dosage: 40 MG, 1X/DAY
  7. LANTUS [Concomitant]
     Dosage: 30 IU, 1X/DAY
     Route: 058

REACTIONS (2)
  - HERPES ZOSTER [None]
  - NEURALGIA [None]
